FAERS Safety Report 16720539 (Version 1)
Quarter: 2019Q3

REPORT INFORMATION
  Report Type: Spontaneous
  Country: US (occurrence: US)
  Receive Date: 20190820
  Receipt Date: 20190820
  Transmission Date: 20191005
  Serious: No
  Sender: FDA-Public Use
  Company Number: US-SUNOVION-2019SUN003369

PATIENT
  Sex: Female

DRUGS (1)
  1. LATUDA [Suspect]
     Active Substance: LURASIDONE HYDROCHLORIDE
     Dosage: 10 MG, QD (1/2 20MG TAB)
     Route: 048

REACTIONS (6)
  - Somnolence [Unknown]
  - Restlessness [Unknown]
  - Wrong technique in product usage process [Unknown]
  - Psychotic disorder [Unknown]
  - Nervousness [Unknown]
  - Mental status changes [Unknown]
